FAERS Safety Report 10833633 (Version 2)
Quarter: 2015Q1

REPORT INFORMATION
  Report Type: Spontaneous
  Country: BR (occurrence: BR)
  Receive Date: 20150219
  Receipt Date: 20150308
  Transmission Date: 20150721
  Serious: Yes (Hospitalization)
  Sender: FDA-Public Use
  Company Number: PHHY2015BR020172

PATIENT
  Sex: Male
  Weight: 86 kg

DRUGS (4)
  1. RASILEZ HCT [Suspect]
     Active Substance: ALISKIREN\HYDROCHLOROTHIAZIDE
     Indication: HYPERTROPHIC CARDIOMYOPATHY
  2. ALLOPURINOL. [Concomitant]
     Active Substance: ALLOPURINOL
     Indication: GOUT
     Dosage: 2 DF, QD
     Route: 048
  3. PURAN [Concomitant]
     Active Substance: LEVOTHYROXINE SODIUM
     Indication: HYPOTHYROIDISM
     Route: 048
  4. RASILEZ HCT [Suspect]
     Active Substance: ALISKIREN\HYDROCHLOROTHIAZIDE
     Indication: HYPERTENSION
     Dosage: 1 DF, QD
     Route: 048
     Dates: end: 20150207

REACTIONS (6)
  - Hypertrophic cardiomyopathy [Recovering/Resolving]
  - Product use issue [Unknown]
  - Dyslipidaemia [Recovering/Resolving]
  - Hypertension [Recovering/Resolving]
  - Chest pain [Recovering/Resolving]
  - Supraventricular tachycardia [Recovering/Resolving]
